FAERS Safety Report 8948181 (Version 2)
Quarter: 2013Q1

REPORT INFORMATION
  Report Type: Spontaneous
  Country: US (occurrence: None)
  Receive Date: 20121126
  Receipt Date: 20130128
  Transmission Date: 20140127
  Serious: Yes (Hospitalization, Other)
  Sender: FDA-Public Use
  Company Number: JPI-P-026337

PATIENT
  Age: 38 Year
  Sex: Female
  Weight: 82.33 kg

DRUGS (3)
  1. XYREM (500 MILLIGRAM/MILLILITERS, SOLUTION) (SODIUM OXYBATE) [Suspect]
     Indication: CATAPLEXY
     Route: 048
     Dates: start: 200805
  2. LEVOTHYROXINE SODIUM [Concomitant]
  3. ARMODAFINIL [Concomitant]

REACTIONS (13)
  - Fall [None]
  - Muscle spasms [None]
  - Arthralgia [None]
  - Local swelling [None]
  - Pain in extremity [None]
  - Face injury [None]
  - Haemorrhage intracranial [None]
  - Insomnia [None]
  - Concussion [None]
  - Amnesia [None]
  - Hypoaesthesia oral [None]
  - Hypersensitivity [None]
  - Feeling abnormal [None]
